FAERS Safety Report 7356955-9 (Version None)
Quarter: 2011Q1

REPORT INFORMATION
  Report Type: 
  Country: None (occurrence: None)
  Receive Date: 20110317
  Receipt Date: 20110311
  Transmission Date: 20110831
  Serious: No
  Sender: FDA-Public Use
  Company Number: US-BIOGENIDEC-2011BI009593

PATIENT
  Age: 50 Year
  Sex: Female

DRUGS (1)
  1. TYSABRI [Suspect]
     Indication: MULTIPLE SCLEROSIS
     Route: 042
     Dates: start: 20100216

REACTIONS (5)
  - MULTIPLE SCLEROSIS RELAPSE [None]
  - EXOSTOSIS [None]
  - PAIN IN EXTREMITY [None]
  - NEURALGIA [None]
  - NECK PAIN [None]
